FAERS Safety Report 12725160 (Version 2)
Quarter: 2016Q4

REPORT INFORMATION
  Report Type: Spontaneous
  Country: GB (occurrence: GB)
  Receive Date: 20160908
  Receipt Date: 20161031
  Transmission Date: 20170207
  Serious: Yes (Other)
  Sender: FDA-Public Use
  Company Number: GB-BIOMARINAP-GB-2016-111011

PATIENT
  Sex: Male

DRUGS (1)
  1. ALDURAZYME [Suspect]
     Active Substance: LARONIDASE
     Indication: PRODUCT USED FOR UNKNOWN INDICATION
     Dosage: UNK UNK, QOW
     Route: 041

REACTIONS (8)
  - Respiratory disorder [Unknown]
  - Malaise [Unknown]
  - Off label use [Unknown]
  - Urinary tract infection [Unknown]
  - Hypotension [Unknown]
  - Viral infection [Unknown]
  - Sputum discoloured [Unknown]
  - Lower respiratory tract infection [Unknown]
